FAERS Safety Report 6534696-5 (Version None)
Quarter: 2009Q4

REPORT INFORMATION
  Report Type: 
  Country: None (occurrence: None)
  Receive Date: 20091228
  Receipt Date: 20091008
  Transmission Date: 20100525
  Serious: Yes (Hospitalization)
  Sender: FDA-Public Use
  Company Number: US-003534

PATIENT
  Sex: Female

DRUGS (3)
  1. MULTIHANCE [Suspect]
     Indication: BACK PAIN
     Dosage: 7ML ONCE EPIDURAL
     Route: 008
     Dates: start: 20091007, end: 20091007
  2. MULTIHANCE [Suspect]
     Indication: INJECTION
     Dosage: 7ML ONCE EPIDURAL
     Route: 008
     Dates: start: 20091007, end: 20091007
  3. MULTIHANCE [Suspect]
     Indication: INTERVERTEBRAL DISC PROTRUSION
     Dosage: 7ML ONCE EPIDURAL
     Route: 008
     Dates: start: 20091007, end: 20091007

REACTIONS (2)
  - CONVULSION [None]
  - SOMNOLENCE [None]
